FAERS Safety Report 7574913-6 (Version None)
Quarter: 2011Q2

REPORT INFORMATION
  Report Type: 
  Country: None (occurrence: None)
  Receive Date: 20110627
  Receipt Date: 20110614
  Transmission Date: 20111010
  Serious: Yes (Death, Other)
  Sender: FDA-Public Use
  Company Number: US-BAYER-200928452NA

PATIENT
  Age: 23 Year
  Sex: Female
  Weight: 64 kg

DRUGS (4)
  1. ONE-A-DAY [Concomitant]
     Indication: VITAMIN SUPPLEMENTATION
     Route: 048
  2. YAZ [Suspect]
     Indication: CONTRACEPTION
     Dosage: TAKEN ON AND OFF INTERMITTENTLY
     Route: 048
     Dates: start: 20061101, end: 20070727
  3. YAZ [Suspect]
  4. IBUPROFEN [Concomitant]
     Indication: PRODUCT USED FOR UNKNOWN INDICATION
     Route: 065

REACTIONS (15)
  - ABDOMINAL PAIN [None]
  - INFECTION [None]
  - DIARRHOEA HAEMORRHAGIC [None]
  - HAEMORRHOIDS [None]
  - PULMONARY CONGESTION [None]
  - RECTAL HAEMORRHAGE [None]
  - VAGINAL HAEMORRHAGE [None]
  - CARDIO-RESPIRATORY ARREST [None]
  - LOSS OF CONSCIOUSNESS [None]
  - DYSPNOEA [None]
  - CHEST PAIN [None]
  - PULMONARY INFARCTION [None]
  - PULMONARY ARTERY THROMBOSIS [None]
  - PULMONARY EMBOLISM [None]
  - MUSCULOSKELETAL PAIN [None]
